FAERS Safety Report 25524757 (Version 2)
Quarter: 2025Q4

REPORT INFORMATION
  Report Type: Report from Study
  Country: EU (occurrence: EU)
  Receive Date: 20250707
  Receipt Date: 20251002
  Transmission Date: 20260117
  Serious: No
  Sender: CLINUVEL
  Company Number: EU-CLINUVEL INC-2180034

PATIENT
  Sex: Male
  Weight: 80 kg

DRUGS (2)
  1. SCENESSE [Suspect]
     Active Substance: AFAMELANOTIDE
     Indication: Porphyria non-acute
     Dates: start: 20250417, end: 20250417
  2. CHOLECALCIFEROL [Concomitant]
     Active Substance: CHOLECALCIFEROL
     Dates: start: 20220624

REACTIONS (1)
  - Headache [Recovered/Resolved]

NARRATIVE: CASE EVENT DATE: 20250417
